FAERS Safety Report 20885631 (Version 1)
Quarter: 2022Q2

REPORT INFORMATION
  Report Type: Spontaneous
  Country: US (occurrence: US)
  Receive Date: 20220527
  Receipt Date: 20220527
  Transmission Date: 20220720
  Serious: No
  Sender: FDA-Public Use
  Company Number: US-PERRIGO-22US005277

PATIENT
  Age: 63 Year
  Sex: Female
  Weight: 6.349 kg

DRUGS (9)
  1. DICLOFENAC SODIUM [Suspect]
     Active Substance: DICLOFENAC SODIUM
     Indication: Product used for unknown indication
     Dosage: 4 G OR LESS, BID
     Route: 061
     Dates: start: 20220328, end: 202204
  2. DICLOFENAC SODIUM [Suspect]
     Active Substance: DICLOFENAC SODIUM
     Dosage: UNKNOWN AMOUNT OF RESIDUE TO TOES, SINGLE
     Route: 061
     Dates: start: 2022, end: 2022
  3. DICLOFENAC SODIUM [Suspect]
     Active Substance: DICLOFENAC SODIUM
     Dosage: 4 G OR LESS, SINGLE
     Route: 061
     Dates: start: 202204, end: 202204
  4. ESTRADIOL [Concomitant]
     Active Substance: ESTRADIOL
     Indication: Prophylaxis
     Dosage: UNK
     Route: 065
     Dates: start: 2014
  5. ESTRADIOL [Concomitant]
     Active Substance: ESTRADIOL
     Indication: Hot flush
  6. VITAMINS [Concomitant]
     Active Substance: VITAMINS
     Indication: Routine health maintenance
     Dosage: UNK
     Route: 065
     Dates: start: 2014
  7. VITAMINS [Concomitant]
     Active Substance: VITAMINS
     Indication: Anxiety
  8. BERBERINE [Concomitant]
     Active Substance: BERBERINE
     Indication: Blood glucose
     Dosage: 1200 MG
     Route: 065
     Dates: start: 2021
  9. ELECTROLYTE SOLUTIONS [ELECTROLYTES NOS] [Concomitant]
     Indication: Routine health maintenance
     Dosage: UNK
     Route: 065
     Dates: start: 2019

REACTIONS (2)
  - Restless legs syndrome [Recovered/Resolved]
  - Underdose [Recovered/Resolved]

NARRATIVE: CASE EVENT DATE: 20220301
